FAERS Safety Report 6883529-6 (Version None)
Quarter: 2010Q3

REPORT INFORMATION
  Report Type: 
  Country: None (occurrence: None)
  Receive Date: 20100727
  Receipt Date: 20100719
  Transmission Date: 20110219
  Serious: Yes (Other)
  Sender: FDA-Public Use
  Company Number: ACO_01483_2010

PATIENT
  Sex: Female
  Weight: 52.1637 kg

DRUGS (3)
  1. AMPYRA [Suspect]
     Indication: GAIT DISTURBANCE
     Dosage: 10 MG BID
     Dates: start: 20100707
  2. LIPITOR [Concomitant]
  3. FOSAMAX [Concomitant]

REACTIONS (2)
  - MUSCLE SPASMS [None]
  - MUSCLE TWITCHING [None]
